FAERS Safety Report 7781144-3 (Version None)
Quarter: 2011Q3

REPORT INFORMATION
  Report Type: 
  Country: None (occurrence: None)
  Receive Date: 20110927
  Receipt Date: 20110923
  Transmission Date: 20111222
  Serious: Yes (Other)
  Sender: FDA-Public Use
  Company Number: PHHY2011ZA85023

PATIENT
  Sex: Female

DRUGS (2)
  1. ZOLEDRONOC ACID [Suspect]
     Dosage: 5 MG/100 ML YEARLY
     Route: 042
     Dates: start: 20100801
  2. ZOLEDRONOC ACID [Suspect]
     Dosage: 5 MG/ 100 ML YEARLY
     Route: 042
     Dates: start: 20090801

REACTIONS (1)
  - TOOTH ABSCESS [None]
